FAERS Safety Report 18969760 (Version 1)
Quarter: 2021Q1

REPORT INFORMATION
  Report Type: Report from Study
  Country: BR (occurrence: BR)
  Receive Date: 20210304
  Receipt Date: 20210304
  Transmission Date: 20210420
  Serious: Yes (Other)
  Sender: FDA-Public Use
  Company Number: BR-TAKEDA-2021TUS012436

PATIENT

DRUGS (1)
  1. HEMO?8R [Suspect]
     Active Substance: ANTIHEMOPHILIC FACTOR, HUMAN RECOMBINANT
     Indication: FACTOR VIII DEFICIENCY
     Dosage: 250 IU INTERNATIONAL UNIT(S), 1/WEEK
     Route: 042
     Dates: start: 20201221

REACTIONS (2)
  - Drug ineffective [Recovering/Resolving]
  - Contusion [Recovering/Resolving]
